FAERS Safety Report 20743767 (Version 2)
Quarter: 2022Q2

REPORT INFORMATION
  Report Type: Spontaneous
  Country: US (occurrence: None)
  Receive Date: 20220425
  Receipt Date: 20220517
  Transmission Date: 20220721
  Serious: Yes (Other)
  Sender: FDA-Public Use
  Company Number: 2022A155415

PATIENT
  Sex: Female

DRUGS (10)
  1. BUDESONIDE\FORMOTEROL\GLYCOPYRRONIUM [Suspect]
     Active Substance: BUDESONIDE\FORMOTEROL\GLYCOPYRRONIUM
     Indication: Chronic obstructive pulmonary disease
     Dosage: 160/9/4.8 MCG, 2 PUFFS TWICE A DAY
     Route: 055
  2. BUDESONIDE\FORMOTEROL\GLYCOPYRRONIUM [Suspect]
     Active Substance: BUDESONIDE\FORMOTEROL\GLYCOPYRRONIUM
     Indication: Emphysema
     Dosage: 160/9/4.8 MCG, 2 PUFFS TWICE A DAY
     Route: 055
  3. BUDESONIDE\FORMOTEROL\GLYCOPYRRONIUM [Suspect]
     Active Substance: BUDESONIDE\FORMOTEROL\GLYCOPYRRONIUM
     Indication: Pulmonary mass
     Dosage: 160/9/4.8 MCG, 2 PUFFS TWICE A DAY
     Route: 055
  4. BUDESONIDE\FORMOTEROL\GLYCOPYRRONIUM [Suspect]
     Active Substance: BUDESONIDE\FORMOTEROL\GLYCOPYRRONIUM
     Indication: Fibrosis
     Dosage: 160/9/4.8 MCG, 2 PUFFS TWICE A DAY
     Route: 055
  5. BUDESONIDE\FORMOTEROL\GLYCOPYRRONIUM [Suspect]
     Active Substance: BUDESONIDE\FORMOTEROL\GLYCOPYRRONIUM
     Indication: Oxygen saturation
     Dosage: 160/9/4.8 MCG, 2 PUFFS TWICE A DAY
     Route: 055
  6. BEVESPI AEROSPHERE [Concomitant]
     Active Substance: FORMOTEROL FUMARATE\GLYCOPYRROLATE
     Indication: Emphysema
     Dosage: UNKNOWN
     Route: 055
  7. BEVESPI AEROSPHERE [Concomitant]
     Active Substance: FORMOTEROL FUMARATE\GLYCOPYRROLATE
     Indication: Chronic obstructive pulmonary disease
     Dosage: UNKNOWN
     Route: 055
  8. BEVESPI AEROSPHERE [Concomitant]
     Active Substance: FORMOTEROL FUMARATE\GLYCOPYRROLATE
     Indication: Pulmonary mass
     Dosage: UNKNOWN
     Route: 055
  9. BEVESPI AEROSPHERE [Concomitant]
     Active Substance: FORMOTEROL FUMARATE\GLYCOPYRROLATE
     Indication: Fibrosis
     Dosage: UNKNOWN
     Route: 055
  10. BEVESPI AEROSPHERE [Concomitant]
     Active Substance: FORMOTEROL FUMARATE\GLYCOPYRROLATE
     Indication: Oxygen saturation
     Dosage: UNKNOWN
     Route: 055

REACTIONS (3)
  - Cataract [Unknown]
  - Wrong technique in device usage process [Not Recovered/Not Resolved]
  - Device delivery system issue [Unknown]
